FAERS Safety Report 5537750-X (Version None)
Quarter: 2007Q4

REPORT INFORMATION
  Report Type: 
  Country: None (occurrence: None)
  Receive Date: 20071207
  Receipt Date: 20071127
  Transmission Date: 20080405
  Serious: Yes (Hospitalization)
  Sender: FDA-Public Use
  Company Number: US-ABBOTT-07P-163-0421990-00

PATIENT
  Sex: Female

DRUGS (5)
  1. HUMIRA [Suspect]
     Indication: CROHN'S DISEASE
     Route: 058
     Dates: start: 20071008
  2. HUMIRA [Suspect]
     Indication: PYODERMA
  3. HUMIRA [Suspect]
  4. 6MP [Concomitant]
     Indication: CROHN'S DISEASE
     Route: 048
  5. ANTIBIOTICS [Concomitant]
     Indication: DRUG USE FOR UNKNOWN INDICATION
     Dates: start: 20071008

REACTIONS (15)
  - APHONIA [None]
  - CHEST DISCOMFORT [None]
  - COUGH [None]
  - DYSPNOEA [None]
  - EAR PAIN [None]
  - HEADACHE [None]
  - MUCOSAL DISCOLOURATION [None]
  - NAUSEA [None]
  - OBSTRUCTIVE AIRWAYS DISORDER [None]
  - PHARYNGOLARYNGEAL PAIN [None]
  - PYODERMA [None]
  - RESPIRATORY TRACT CONGESTION [None]
  - SINUS DISORDER [None]
  - UPPER RESPIRATORY TRACT INFECTION [None]
  - VOMITING [None]
